FAERS Safety Report 9769593 (Version 1)
Quarter: 2013Q4

REPORT INFORMATION
  Report Type: Spontaneous
  Country: US (occurrence: US)
  Receive Date: 20131218
  Receipt Date: 20131218
  Transmission Date: 20140711
  Serious: Yes (Hospitalization)
  Sender: FDA-Public Use
  Company Number: US-SHIRE-ALL1-2013-08637

PATIENT
  Sex: Female

DRUGS (1)
  1. PENTASA [Suspect]
     Indication: COLITIS ULCERATIVE
     Dosage: UNK UNK (16 PILLS), OTHER (A DAY)
     Route: 048
     Dates: end: 201003

REACTIONS (2)
  - Intestinal obstruction [Unknown]
  - Malaise [Unknown]
